FAERS Safety Report 4305179-8 (Version None)
Quarter: 2004Q1

REPORT INFORMATION
  Report Type: 
  Country: None (occurrence: None)
  Receive Date: 20040225
  Receipt Date: 20040225
  Transmission Date: 20041129
  Serious: Yes (Life-Threatening, Hospitalization)
  Sender: FDA-Public Use
  Company Number: None

PATIENT
  Age: 40 Year
  Sex: Male

DRUGS (10)
  1. FLUCONAZOLE [Suspect]
     Indication: INFECTION
     Dosage: 400 MG PO Q DAY
     Route: 048
     Dates: start: 20031002, end: 20031105
  2. PROMETHAZINE [Suspect]
     Indication: NAUSEA
     Dosage: 12.5 MG IV Q4H PRN
     Route: 042
     Dates: start: 20031027, end: 20031105
  3. PROMETHAZINE [Suspect]
     Indication: VOMITING
     Dosage: 12.5 MG IV Q4H PRN
     Route: 042
     Dates: start: 20031027, end: 20031105
  4. HEPARIN [Concomitant]
  5. LEVOTHYROXINE SODIUM [Concomitant]
  6. LINEZOLIDE [Concomitant]
  7. MORPHINE [Concomitant]
  8. PIPERACILLIN/TAZOBACTAM [Concomitant]
  9. POTASSIUM [Concomitant]
  10. RANITIDINE [Concomitant]

REACTIONS (10)
  - ABDOMINAL PAIN [None]
  - DELIRIUM [None]
  - ELECTROCARDIOGRAM QT CORRECTED INTERVAL PROLONGED [None]
  - LIVER FUNCTION TEST ABNORMAL [None]
  - NAUSEA [None]
  - POST PROCEDURAL COMPLICATION [None]
  - PYREXIA [None]
  - VENTRICULAR EXTRASYSTOLES [None]
  - VENTRICULAR TACHYCARDIA [None]
  - WHITE BLOOD CELL COUNT INCREASED [None]
